FAERS Safety Report 8758484 (Version 1)
Quarter: 2012Q4

REPORT INFORMATION
  Report Type: 
  Country: FR (occurrence: FR)
  Receive Date: 20120829
  Receipt Date: 20120829
  Transmission Date: 20130627
  Serious: Yes (Hospitalization)
  Sender: FDA-Public Use
  Company Number: FR-UCBSA-064269

PATIENT
  Age: 77 Year
  Sex: Male

DRUGS (6)
  1. KEPPRA [Suspect]
     Route: 048
     Dates: start: 2006, end: 20120615
  2. KARDEGIC [Concomitant]
     Dosage: DAILY DOSE: 75 MG
  3. URBANYL [Concomitant]
     Dosage: daily dose: 5 MG
  4. DUPHALAC [Concomitant]
     Dosage: IF NEEDED
  5. VIMPAT [Concomitant]
     Dosage: 100 MG
     Dates: start: 201204, end: 20120615
  6. VIMPAT [Concomitant]
     Dosage: INCREASED DOSE
     Dates: start: 20120616

REACTIONS (8)
  - Mental disorder [Recovering/Resolving]
  - Delusional disorder, unspecified type [Unknown]
  - Mania [Unknown]
  - Thinking abnormal [Unknown]
  - Irritability [Unknown]
  - Anxiety [Unknown]
  - Insomnia [Unknown]
  - Weight decreased [Unknown]
